FAERS Safety Report 6408908-2 (Version None)
Quarter: 2009Q4

REPORT INFORMATION
  Report Type: 
  Country: None (occurrence: None)
  Receive Date: 20091021
  Receipt Date: 20091019
  Transmission Date: 20100525
  Serious: Yes (Disabling, Other)
  Sender: FDA-Public Use
  Company Number: US-MERCK-0908USA02987

PATIENT
  Age: 58 Year
  Sex: Female

DRUGS (3)
  1. FOSAMAX [Suspect]
     Indication: OSTEOPENIA
     Route: 048
     Dates: start: 20000522, end: 20060605
  2. FOSAMAX [Suspect]
     Indication: OSTEOPOROSIS
     Route: 048
     Dates: start: 20000522, end: 20060605
  3. PREMARIN [Concomitant]
     Route: 065
     Dates: start: 19940101, end: 20020101

REACTIONS (11)
  - BLOOD CHOLESTEROL INCREASED [None]
  - GINGIVAL DISORDER [None]
  - HYPERTENSION [None]
  - IMPAIRED HEALING [None]
  - JAW DISORDER [None]
  - ORAL TORUS [None]
  - OSTEOMYELITIS [None]
  - OSTEONECROSIS [None]
  - STOMATITIS [None]
  - TOOTH DISORDER [None]
  - TOOTHACHE [None]
